FAERS Safety Report 25226046 (Version 1)
Quarter: 2025Q2

REPORT INFORMATION
  Report Type: Spontaneous
  Country: SE (occurrence: SE)
  Receive Date: 20250422
  Receipt Date: 20250422
  Transmission Date: 20250716
  Serious: Yes (Hospitalization)
  Sender: BAUSCH AND LOMB
  Company Number: SE-BAUSCH-BL-2025-005139

PATIENT
  Age: 21 Year
  Sex: Female

DRUGS (2)
  1. BUDESONIDE [Suspect]
     Active Substance: BUDESONIDE
     Indication: Autoimmune hepatitis
     Route: 065
     Dates: start: 20250303
  2. PREDNISOLONE [Suspect]
     Active Substance: PREDNISOLONE
     Indication: Autoimmune hepatitis
     Route: 065
     Dates: start: 20250129

REACTIONS (1)
  - Myopathy [Unknown]

NARRATIVE: CASE EVENT DATE: 20250101
